FAERS Safety Report 5324300-6 (Version None)
Quarter: 2007Q2

REPORT INFORMATION
  Report Type: 
  Country: None (occurrence: None)
  Receive Date: 20070514
  Receipt Date: 20070507
  Transmission Date: 20071010
  Serious: Yes (Hospitalization)
  Sender: FDA-Public Use
  Company Number: DE-BOEHRINGER INGELHEIM PHARMACEUTICALS, INC.-2007-DE-02429DE

PATIENT
  Sex: Male
  Weight: 60 kg

DRUGS (11)
  1. AGGRENOX [Suspect]
     Indication: CORONARY ARTERY DISEASE
  2. AGGRENOX [Suspect]
     Indication: AORTIC VALVE REPLACEMENT
  3. PLAVIX [Concomitant]
  4. PANTOZOL [Concomitant]
  5. TORSEMIDE [Concomitant]
  6. CAPTOHEXAL [Concomitant]
  7. DIGIMERCK [Concomitant]
  8. ALLOPURINOL [Concomitant]
  9. FERROUS SULFATE TAB [Concomitant]
  10. LACTULOSE [Concomitant]
     Dosage: AS REQUIRED
  11. NOVALGIN [Concomitant]
     Dosage: AS REQUIRED

REACTIONS (5)
  - HAEMATOMA [None]
  - HAEMORRHAGIC DIATHESIS [None]
  - IRON DEFICIENCY ANAEMIA [None]
  - OESOPHAGITIS ULCERATIVE [None]
  - UPPER GASTROINTESTINAL HAEMORRHAGE [None]
